FAERS Safety Report 21613858 (Version 4)
Quarter: 2023Q1

REPORT INFORMATION
  Report Type: Report from Study
  Country: US (occurrence: US)
  Receive Date: 20221118
  Receipt Date: 20230117
  Transmission Date: 20230417
  Serious: No
  Sender: FDA-Public Use
  Company Number: US-002147023-NVSC2022US259778

PATIENT
  Sex: Female

DRUGS (1)
  1. COSENTYX [Suspect]
     Active Substance: SECUKINUMAB
     Indication: Psoriatic arthropathy
     Dosage: UNK
     Route: 058

REACTIONS (5)
  - Abdominal discomfort [Unknown]
  - Palpitations [Unknown]
  - Ventricular extrasystoles [Unknown]
  - Haemoglobin increased [Unknown]
  - Supraventricular extrasystoles [Unknown]
